FAERS Safety Report 17499932 (Version 1)
Quarter: 2020Q1

REPORT INFORMATION
  Report Type: Spontaneous
  Country: US (occurrence: US)
  Receive Date: 20200304
  Receipt Date: 20200304
  Transmission Date: 20200409
  Serious: Yes (Hospitalization)
  Sender: FDA-Public Use
  Company Number: US-SUN PHARMACEUTICAL INDUSTRIES LTD-2020R1-239042

PATIENT
  Age: 70 Year
  Sex: Female

DRUGS (1)
  1. ATORVASTATIN [Suspect]
     Active Substance: ATORVASTATIN
     Indication: LIVER FUNCTION TEST INCREASED
     Dosage: 40 MILLIGRAM, DAILY
     Route: 065

REACTIONS (2)
  - Primary biliary cholangitis [Recovering/Resolving]
  - Autoimmune hepatitis [Recovering/Resolving]
